FAERS Safety Report 8416992-X (Version None)
Quarter: 2012Q2

REPORT INFORMATION
  Report Type: 
  Country: None (occurrence: None)
  Receive Date: 20120606
  Receipt Date: 20120604
  Transmission Date: 20120825
  Serious: Yes (Life-Threatening, Hospitalization)
  Sender: FDA-Public Use
  Company Number: NL-B.I. PHARMACEUTICALS,INC./RIDGEFIELD-2012-RD-00231EU

PATIENT
  Sex: Female
  Weight: 53.8 kg

DRUGS (14)
  1. PERINDOPRIL ERBUMINE [Concomitant]
     Indication: HYPERTENSION
  2. FLU VACCINATION [Concomitant]
     Indication: ANTIVIRAL PROPHYLAXIS
     Dates: start: 20111104, end: 20111104
  3. INDAPAMIDE [Concomitant]
     Indication: HYPERTENSION
     Dates: start: 20120213
  4. NEXIUM [Concomitant]
     Indication: GASTRITIS
     Dosage: 20 MG
     Route: 048
     Dates: start: 20111229, end: 20120502
  5. RANIBIZUMAB [Concomitant]
     Indication: MACULAR OEDEMA
  6. BI 1356 [Suspect]
     Indication: TYPE 2 DIABETES MELLITUS
     Dosage: 5 MG
     Dates: start: 20111027, end: 20120508
  7. METFORMIN HCL [Suspect]
     Indication: TYPE 2 DIABETES MELLITUS
     Dosage: 1500 MG
     Route: 048
     Dates: start: 20061002, end: 20120410
  8. ASCAL [Concomitant]
     Indication: ATHEROSCLEROSIS PROPHYLAXIS
  9. METFORMIN HCL [Suspect]
     Dosage: 1000 MG
     Route: 048
     Dates: start: 20120410, end: 20120502
  10. ATORVASTATIN CALCIUM [Concomitant]
     Indication: ATHEROSCLEROSIS PROPHYLAXIS
  11. CHLOORAMPENICOL [Concomitant]
     Indication: MACULAR OEDEMA
  12. TRIAL PROCEDURE [Suspect]
     Indication: TYPE 2 DIABETES MELLITUS
  13. STRUMAZOL [Concomitant]
     Indication: HYPERTHYROIDISM
     Dates: start: 20081013, end: 20110506
  14. ACTOS [Concomitant]
     Indication: TYPE 2 DIABETES MELLITUS
     Dosage: 45 MG
     Route: 048
     Dates: start: 20120217, end: 20120508

REACTIONS (3)
  - COLITIS MICROSCOPIC [None]
  - HYPERGLYCAEMIA [None]
  - RENAL CELL CARCINOMA [None]
